FAERS Safety Report 12416168 (Version 1)
Quarter: 2016Q2

REPORT INFORMATION
  Report Type: Report from Study
  Country: CA (occurrence: CA)
  Receive Date: 20160530
  Receipt Date: 20160530
  Transmission Date: 20160815
  Serious: Yes (Other)
  Sender: FDA-Public Use
  Company Number: CA-PFIZER INC-2016270167

PATIENT
  Sex: Male

DRUGS (8)
  1. LIDOCAINE. [Concomitant]
     Active Substance: LIDOCAINE
     Indication: ANAESTHESIA
     Dosage: 1 MG/KG, UNK
  2. FENTANYL. [Concomitant]
     Active Substance: FENTANYL
     Indication: ANAESTHESIA
     Dosage: UNK (2-3 MICROG/KG)
  3. THIOPENTONE [Concomitant]
     Active Substance: THIOPENTAL SODIUM
     Indication: ANAESTHESIA
     Dosage: UNK (5-6 MG/KG)
  4. MANNITOL. [Suspect]
     Active Substance: MANNITOL
     Dosage: (2 GM/KG, 20%)
     Route: 042
  5. ISOFLURANE. [Concomitant]
     Active Substance: ISOFLURANE
     Indication: ANAESTHESIA
     Dosage: UNK
  6. PANCURONIUM [Concomitant]
     Active Substance: PANCURONIUM
     Indication: ANAESTHESIA
     Dosage: UNK
  7. SUCCINYLCHOLINE [Concomitant]
     Active Substance: SUCCINYLCHOLINE
     Indication: ENDOTRACHEAL INTUBATION
     Dosage: 1 MG/KG, UNK
  8. NITROUS OXIDE. [Concomitant]
     Active Substance: NITROUS OXIDE
     Indication: ANAESTHESIA
     Dosage: 50 %, UNK

REACTIONS (1)
  - Hyperkalaemia [Recovered/Resolved]
